FAERS Safety Report 11311187 (Version 2)
Quarter: 2015Q3

REPORT INFORMATION
  Report Type: Spontaneous
  Country: US (occurrence: US)
  Receive Date: 20150727
  Receipt Date: 20150727
  Transmission Date: 20151125
  Serious: No
  Sender: FDA-Public Use
  Company Number: US-009507513-1507USA011520

PATIENT
  Age: 70 Year
  Sex: Female

DRUGS (1)
  1. RAGWITEK [Suspect]
     Active Substance: AMBROSIA ARTEMISIIFOLIA POLLEN
     Indication: HYPERSENSITIVITY
     Dosage: UNSPECIFIED / ONCE A DAY IN THE MORNING
     Route: 060
     Dates: start: 20150707

REACTIONS (4)
  - Hyperhidrosis [Not Recovered/Not Resolved]
  - Headache [Not Recovered/Not Resolved]
  - Pyrexia [Not Recovered/Not Resolved]
  - Cough [Not Recovered/Not Resolved]

NARRATIVE: CASE EVENT DATE: 20150719
